FAERS Safety Report 21005689 (Version 2)
Quarter: 2022Q3

REPORT INFORMATION
  Report Type: Spontaneous
  Country: BR (occurrence: BR)
  Receive Date: 20220624
  Receipt Date: 20220708
  Transmission Date: 20221026
  Serious: Yes (Death)
  Sender: FDA-Public Use
  Company Number: BR-TEVA BRAZIL-2022-BR-2047598

PATIENT
  Age: 14 Year
  Sex: Male

DRUGS (4)
  1. METHOTREXATE [Suspect]
     Active Substance: METHOTREXATE
     Indication: Prophylaxis against graft versus host disease
     Dosage: THE PATIENT RECEIVED METHOTREXATE AT 1, 3, 6 AND 11DAYS AFTER TRANSPLANT
     Route: 065
  2. CYCLOPHOSPHAMIDE [Suspect]
     Active Substance: CYCLOPHOSPHAMIDE
     Indication: Bone marrow conditioning regimen
     Route: 065
  3. CYCLOSPORINE [Suspect]
     Active Substance: CYCLOSPORINE
     Indication: Prophylaxis against graft versus host disease
     Dosage: THE PATIENT RECEIVED CICLOSPORIN [CYCLOSPORINE] AT 1, 3, 6 AND 11DAYS AFTER TRANSPLANT
     Route: 065
  4. PREDNISONE [Suspect]
     Active Substance: PREDNISONE
     Indication: Immunosuppressant drug therapy
     Dosage: 10 MILLIGRAM DAILY;
     Route: 065

REACTIONS (4)
  - Squamous cell carcinoma [Fatal]
  - Cachexia [Fatal]
  - Dental caries [Unknown]
  - Tooth restoration [Unknown]
